FAERS Safety Report 9538421 (Version 4)
Quarter: 2013Q4

REPORT INFORMATION
  Report Type: Spontaneous
  Country: US (occurrence: US)
  Receive Date: 20130920
  Receipt Date: 20131011
  Transmission Date: 20140711
  Serious: No
  Sender: FDA-Public Use
  Company Number: US-PFIZER INC-2013270459

PATIENT
  Age: 83 Year
  Sex: Male

DRUGS (9)
  1. LYRICA [Suspect]
     Dosage: 50 MG, 2X/DAY
     Route: 048
  2. LYRICA [Suspect]
     Dosage: 50 MG, 3X/DAY
     Route: 048
  3. LYRICA [Suspect]
     Dosage: 50 MG, UNK
     Route: 048
  4. LYRICA [Suspect]
     Dosage: 150 MG, UNK
     Route: 048
  5. LYRICA [Suspect]
     Dosage: UNK
     Route: 048
  6. LYRICA [Suspect]
     Dosage: 50 MG, UNK
     Route: 048
  7. LYRICA [Suspect]
     Dosage: 100 MG, UNK
     Route: 048
  8. LYRICA [Suspect]
     Dosage: 150 MG, 2X/DAY
     Route: 048
  9. LYRICA [Suspect]
     Dosage: UNK
     Route: 048

REACTIONS (8)
  - Drug ineffective [Not Recovered/Not Resolved]
  - Limb discomfort [Unknown]
  - Hyperaesthesia [Unknown]
  - Gait disturbance [Unknown]
  - Walking aid user [Unknown]
  - Pain in extremity [Unknown]
  - Poor quality drug administered [Unknown]
  - Product colour issue [Unknown]
